FAERS Safety Report 14422402 (Version 3)
Quarter: 2018Q1

REPORT INFORMATION
  Report Type: Spontaneous
  Country: PT (occurrence: PT)
  Receive Date: 20180123
  Receipt Date: 20180227
  Transmission Date: 20180509
  Serious: Yes (Hospitalization, Other)
  Sender: FDA-Public Use
  Company Number: PT-ASPEN-GLO2017PT009166

PATIENT
  Age: 18 Year
  Sex: Female

DRUGS (3)
  1. DESOGESTREL, ETHINYLESTRADIOL [Suspect]
     Active Substance: DESOGESTREL
     Indication: PRODUCT USED FOR UNKNOWN INDICATION
     Dosage: 13 DF (DESOGESTREL 0.15 MG AND ETHINYLESTRADIOL 0.03 MG ) SINGLE
     Route: 048
  2. FERROUS SULFATE. [Suspect]
     Active Substance: FERROUS SULFATE
     Dosage: 329.7 MG OF PROLONGED / SLOW RELEASE (IRON ELEMENTAL DOSAGE: 37.5 MG / KG)
     Route: 048
  3. FERROUS SULFATE. [Suspect]
     Active Substance: FERROUS SULFATE
     Indication: IRON DEFICIENCY ANAEMIA
     Dosage: 25DF, 329.7 MG OF PROLONGED RELEASE (IRON ELEMENTAL DOSAGE: 37.5 MG / KG)
     Route: 048

REACTIONS (5)
  - Poisoning deliberate [Recovered/Resolved]
  - Vomiting [Recovered/Resolved]
  - Abdominal pain [Recovered/Resolved]
  - Headache [Recovered/Resolved]
  - Nausea [Recovered/Resolved]
